FAERS Safety Report 5060265-2 (Version None)
Quarter: 2006Q3

REPORT INFORMATION
  Report Type: 
  Country: None (occurrence: None)
  Receive Date: 20060720
  Receipt Date: 20060713
  Transmission Date: 20061208
  Serious: Yes (Death, Other)
  Sender: FDA-Public Use
  Company Number: 2006-00352

PATIENT
  Age: 61 Year
  Sex: Female
  Weight: 52 kg

DRUGS (7)
  1. VELCADE [Suspect]
     Indication: MULTIPLE MYELOMA
     Dosage: 1.80 MG/M2, INTRAVENOUS
     Route: 042
     Dates: start: 20050526, end: 20050605
  2. FAMOTIDINE [Concomitant]
  3. ALFAROL (ALFACALCIDOL) [Concomitant]
  4. SULFAMETHOXAZOLE + TRIMETHOPRIM [Concomitant]
  5. OZEX (TOSUFLOXACIN TOSILATE) [Concomitant]
  6. DIFLUCAN [Concomitant]
  7. MUCODYNE (CARBOCISTEINE) [Concomitant]

REACTIONS (10)
  - DISEASE PROGRESSION [None]
  - HYPOALBUMINAEMIA [None]
  - MARROW HYPERPLASIA [None]
  - MULTIPLE MYELOMA [None]
  - MUSCULOSKELETAL CHEST PAIN [None]
  - PLEURAL EFFUSION [None]
  - PYREXIA [None]
  - RENAL FAILURE [None]
  - RESPIRATORY FAILURE [None]
  - SOMNOLENCE [None]
